FAERS Safety Report 6976097-1 (Version None)
Quarter: 2010Q3

REPORT INFORMATION
  Report Type: 
  Country: None (occurrence: None)
  Receive Date: 20100910
  Receipt Date: 20100903
  Transmission Date: 20110219
  Serious: Yes (Other)
  Sender: FDA-Public Use
  Company Number: DE-PFIZER INC-2010105157

PATIENT
  Age: 69 Year
  Sex: Female
  Weight: 78 kg

DRUGS (8)
  1. CELEBREX [Suspect]
     Indication: RHEUMATOID ARTHRITIS
     Dosage: 200 MG, 2X/DAY
     Route: 048
     Dates: start: 20000101, end: 20100101
  2. ARTHROTEC [Concomitant]
     Dosage: UNK
  3. ATACAND [Concomitant]
     Indication: HYPERTENSION
     Dosage: 8 MG/DAY
     Route: 048
     Dates: start: 20070101
  4. CORTISONE [Concomitant]
     Dosage: 2 MG, UNK
  5. DECORTIN [Concomitant]
     Indication: POLYMYALGIA RHEUMATICA
     Dosage: 2 MG/DAY
     Route: 048
     Dates: start: 20000101
  6. URSO FALK [Concomitant]
     Indication: BILIARY CIRRHOSIS PRIMARY
     Dosage: 1000 MG/DAY
     Route: 048
     Dates: start: 19950101
  7. PLAVIX [Concomitant]
     Indication: PERIPHERAL ARTERIAL OCCLUSIVE DISEASE
     Dosage: 75 MG, 1X/DAY
     Dates: start: 20000101
  8. COPAXONE [Concomitant]
     Indication: MULTIPLE SCLEROSIS
     Dosage: 1 DF, 1X/DAY
     Route: 058
     Dates: start: 20000101

REACTIONS (3)
  - ARRHYTHMIA [None]
  - EXTRASYSTOLES [None]
  - HYPERKALAEMIA [None]
